APPROVED DRUG PRODUCT: KETOCONAZOLE
Active Ingredient: KETOCONAZOLE
Strength: 200MG
Dosage Form/Route: TABLET;ORAL
Application: A075362 | Product #001
Applicant: HERITAGE PHARMA LABS INC
Approved: Jun 15, 1999 | RLD: No | RS: No | Type: DISCN